FAERS Safety Report 9384006 (Version 1)
Quarter: 2013Q3

REPORT INFORMATION
  Report Type: Spontaneous
  Country: US (occurrence: US)
  Receive Date: 20130705
  Receipt Date: 20130705
  Transmission Date: 20140515
  Serious: No
  Sender: FDA-Public Use
  Company Number: US-009507513-1306USA014826

PATIENT
  Sex: Female

DRUGS (1)
  1. NEXPLANON [Suspect]
     Indication: CONTRACEPTION
     Dosage: UNK
     Route: 059
     Dates: start: 20101209, end: 20130626

REACTIONS (3)
  - Soft tissue injury [Recovering/Resolving]
  - Soft tissue disorder [Recovering/Resolving]
  - Implant site pain [Recovering/Resolving]
